FAERS Safety Report 23045370 (Version 3)
Quarter: 2024Q3

REPORT INFORMATION
  Report Type: Report from Study
  Country: US (occurrence: US)
  Receive Date: 20231009
  Receipt Date: 20240719
  Transmission Date: 20241016
  Serious: Yes (Other)
  Sender: ABBVIE
  Company Number: US-ABBVIE-5434077

PATIENT
  Age: 67 Year
  Sex: Female
  Weight: 63.049 kg

DRUGS (25)
  1. VENCLEXTA [Suspect]
     Active Substance: VENETOCLAX
     Indication: Chronic lymphocytic leukaemia
     Dosage: FORM STREGNTH:100 MG,
     Route: 048
     Dates: start: 20231001
  2. VENCLEXTA [Suspect]
     Active Substance: VENETOCLAX
     Indication: Chronic lymphocytic leukaemia
     Dosage: FORM STREGNTH:100 MG?STARTER PACK DOSE PACK 1 PACKAGE ORALLY AS DIRECTED. TAKE WITH WATER AND A M...
     Route: 048
     Dates: end: 20230802
  3. VENCLEXTA [Suspect]
     Active Substance: VENETOCLAX
     Indication: Chronic lymphocytic leukaemia
     Dosage: TIME INTERVAL: TOTAL
     Route: 048
     Dates: start: 20230925, end: 20230925
  4. VENCLEXTA [Suspect]
     Active Substance: VENETOCLAX
     Indication: Chronic lymphocytic leukaemia
     Dosage: STARTER PACK DOSE PACK 1?TAKE WITH WATER AND A MEAL.
     Route: 048
     Dates: start: 20230722, end: 20230722
  5. VENCLEXTA [Suspect]
     Active Substance: VENETOCLAX
     Indication: Chronic lymphocytic leukaemia
     Dosage: STARTER PACK DOSE PACK 1 PACKAGE ORALLY AS DIRECTED. TAKE WITH WATER AND A MEAL
     Route: 048
     Dates: start: 202307, end: 202307
  6. Acaya [Concomitant]
     Indication: Product used for unknown indication
     Dosage: 100 MG BID
     Dates: start: 20230612, end: 202307
  7. ALDACTONE [Concomitant]
     Active Substance: SPIRONOLACTONE
     Indication: Product used for unknown indication
     Route: 048
  8. FAMOTIDINE [Concomitant]
     Active Substance: FAMOTIDINE
     Indication: Osteopenia
     Dosage: IV 20 MG INTRAVENOUSLY PIGGYBACK ONCE
     Route: 042
     Dates: start: 20180507
  9. RITUXAN [Suspect]
     Active Substance: RITUXIMAB
     Indication: Chronic lymphocytic leukaemia
     Route: 065
     Dates: start: 20230724, end: 20230724
  10. GAZYVA [Suspect]
     Active Substance: OBINUTUZUMAB
     Indication: Chronic lymphocytic leukaemia
     Route: 042
     Dates: start: 20230802, end: 20230804
  11. GAZYVA [Suspect]
     Active Substance: OBINUTUZUMAB
     Indication: Chronic lymphocytic leukaemia
     Dosage: ONGOING NO (MINIMAL DOSE THAT DAY MAYBE 40MG OR 50MG OUT OF THE TARGET OF 500MG)
     Route: 042
     Dates: start: 20230823, end: 20230919
  12. GAZYVA [Suspect]
     Active Substance: OBINUTUZUMAB
     Indication: Chronic lymphocytic leukaemia
     Dosage: SHE GOT 500MG, BUT THEY WERE AIMING FOR 900MG?EVERY 28 DAYS AND THE OTHER ONE EVERY 21 DAYS, ROA ...
     Route: 042
     Dates: start: 20230830
  13. LEVOFLOXACIN [Concomitant]
     Active Substance: LEVOFLOXACIN
     Indication: Product used for unknown indication
  14. ACYCLOVIR [Concomitant]
     Active Substance: ACYCLOVIR
     Indication: Product used for unknown indication
  15. CLARITIN [Concomitant]
     Active Substance: LORATADINE
     Indication: Product used for unknown indication
     Dosage: TIME INTERVAL: AS NECESSARY
     Route: 048
  16. FILGRASTIM [Concomitant]
     Active Substance: FILGRASTIM
     Indication: Product used for unknown indication
     Dosage: DOSE: 480 MCG/KG
     Route: 058
  17. CALTRATE 600+D [Concomitant]
     Indication: Product used for unknown indication
     Dosage: (1,500 MY-GOO UNIT) 1 TABLET PO DAILY
     Route: 048
  18. IBRUTINIB [Suspect]
     Active Substance: IBRUTINIB
     Indication: Product used for unknown indication
     Route: 048
     Dates: start: 20170918, end: 20180224
  19. IBRUTINIB [Suspect]
     Active Substance: IBRUTINIB
     Indication: Product used for unknown indication
     Route: 048
     Dates: start: 20180302
  20. IBRUTINIB [Suspect]
     Active Substance: IBRUTINIB
     Indication: Product used for unknown indication
     Route: 048
     Dates: start: 20230228, end: 20230401
  21. IBRUTINIB [Suspect]
     Active Substance: IBRUTINIB
     Indication: Product used for unknown indication
     Dosage: FIRST ADMIN DATE: 2023
     Route: 048
  22. FOSAMAX [Concomitant]
     Active Substance: ALENDRONATE SODIUM
     Indication: Product used for unknown indication
     Dates: start: 20180507
  23. PEPCID AC [Concomitant]
     Active Substance: FAMOTIDINE
     Indication: Product used for unknown indication
     Dosage: 25ML PER HOUR AND WOULD INCREASE THE SPEED
     Route: 065
  24. PREDNISONE [Concomitant]
     Active Substance: PREDNISONE
     Indication: Product used for unknown indication
     Dosage: 25ML PER HOUR AND WOULD INCREASE THE SPEED
     Route: 065
  25. FOLIC ACID [Concomitant]
     Active Substance: FOLIC ACID
     Indication: Product used for unknown indication

REACTIONS (9)
  - B-cell small lymphocytic lymphoma [Unknown]
  - Feeling hot [Recovered/Resolved]
  - Tremor [Recovered/Resolved]
  - Flushing [Recovered/Resolved]
  - Drug hypersensitivity [Unknown]
  - Haemoglobin decreased [Recovered/Resolved]
  - Platelet count decreased [Recovering/Resolving]
  - Product use in unapproved indication [Unknown]
  - Product use in unapproved indication [Unknown]

NARRATIVE: CASE EVENT DATE: 20230724
